FAERS Safety Report 6771084-0 (Version None)
Quarter: 2010Q2

REPORT INFORMATION
  Report Type: 
  Country: None (occurrence: None)
  Receive Date: 20100616
  Receipt Date: 20100610
  Transmission Date: 20101027
  Serious: Yes (Death, Life-Threatening, Hospitalization, Other)
  Sender: FDA-Public Use
  Company Number: US-TYCO HEALTHCARE/MALLINCKRODT-T200901317

PATIENT
  Sex: Female
  Weight: 61.224 kg

DRUGS (20)
  1. OPTIMARK [Suspect]
     Indication: ANGIOGRAM
     Dosage: UNK
     Dates: start: 20030715, end: 20030715
  2. OPTIMARK [Suspect]
     Dosage: UNK
     Dates: start: 20040831, end: 20040831
  3. MAGNEVIST [Suspect]
     Indication: ANGIOGRAM
     Dosage: UNK
     Dates: start: 20001226, end: 20001226
  4. MAGNEVIST [Suspect]
     Dosage: UNK
     Dates: start: 20010925, end: 20010925
  5. MAGNEVIST [Suspect]
     Dosage: UNK
     Dates: start: 20040428, end: 20040428
  6. MAGNEVIST [Suspect]
     Dosage: 20 ML, SINGLE
     Dates: start: 20041031, end: 20041031
  7. OMNISCAN [Suspect]
     Indication: ANGIOGRAM
     Dosage: 100 ML, SINGLE
     Route: 042
     Dates: start: 20040503, end: 20040503
  8. BLOOD PRESSURE MEDICATIONS [Concomitant]
  9. VERAPAMIL [Concomitant]
     Dosage: 240 MG, QD
  10. HYDROXYUREA [Concomitant]
     Dosage: 500 MG, BID
  11. AVAPRO [Concomitant]
     Dosage: 300 MG, QD
  12. ECOTRIN [Concomitant]
     Dosage: 400 MG, BID
  13. COUMADIN [Concomitant]
     Dosage: 4 MG, QD
  14. AGGRENOX [Concomitant]
     Dosage: 1 TAB, BID
  15. FLEXERIL [Concomitant]
     Dosage: UNK, AT HS
  16. XANAX [Concomitant]
     Dosage: 0.25 MG, TID
  17. ZOLOFT [Concomitant]
     Dosage: 75 MG, QD
  18. VITAMINS                           /90003601/ [Concomitant]
  19. CALCITROL                          /00508501/ [Concomitant]
  20. PROCRIT                            /00909301/ [Concomitant]

REACTIONS (20)
  - ABDOMINAL PAIN UPPER [None]
  - ANGINA UNSTABLE [None]
  - AORTIC VALVE INCOMPETENCE [None]
  - CARDIAC ARREST [None]
  - CARDIAC FAILURE CONGESTIVE [None]
  - COAGULOPATHY [None]
  - DIVERTICULUM [None]
  - EPISTAXIS [None]
  - FALL [None]
  - HIP FRACTURE [None]
  - HYPERTENSIVE CRISIS [None]
  - MALLORY-WEISS SYNDROME [None]
  - METABOLIC ENCEPHALOPATHY [None]
  - NEPHROGENIC SYSTEMIC FIBROSIS [None]
  - OFF LABEL USE [None]
  - RENAL FAILURE CHRONIC [None]
  - RESPIRATORY FAILURE [None]
  - SEPTIC SHOCK [None]
  - STAPHYLOCOCCAL SEPSIS [None]
  - URINARY TRACT INFECTION [None]
